FAERS Safety Report 17112915 (Version 3)
Quarter: 2020Q3

REPORT INFORMATION
  Report Type: Report from Study
  Country: TW (occurrence: TW)
  Receive Date: 20191204
  Receipt Date: 20191216
  Transmission Date: 20201105
  Serious: Yes (Other)
  Sender: FDA-Public Use
  Company Number: NVSC2019TW029884

PATIENT
  Age: 57 Year
  Sex: Female
  Weight: 52 kg

DRUGS (3)
  1. EGF816 [Suspect]
     Active Substance: NAZARTINIB
     Indication: NON-SMALL CELL LUNG CANCER
     Dosage: 100 MG, QD
     Route: 048
     Dates: start: 20190125
  2. TRAMETINIB [Suspect]
     Active Substance: TRAMETINIB
     Indication: NON-SMALL CELL LUNG CANCER
     Dosage: 1 MG, QD
     Route: 048
     Dates: start: 20190712
  3. EGF816 [Suspect]
     Active Substance: NAZARTINIB
     Dosage: 100 MG, QD
     Route: 048
     Dates: start: 20191030

REACTIONS (1)
  - Hepatitis B DNA increased [Recovered/Resolved]

NARRATIVE: CASE EVENT DATE: 20191008
